FAERS Safety Report 16847302 (Version 2)
Quarter: 2019Q4

REPORT INFORMATION
  Report Type: Report from Study
  Country: US (occurrence: US)
  Receive Date: 20190924
  Receipt Date: 20191018
  Transmission Date: 20200122
  Serious: Yes (Hospitalization)
  Sender: FDA-Public Use
  Company Number: US-ACTELION-A-NJ2019-195899

PATIENT
  Age: 11 Month
  Sex: Female

DRUGS (5)
  1. TRACLEER [Suspect]
     Active Substance: BOSENTAN
     Indication: PULMONARY ARTERIAL HYPERTENSION
     Dosage: 16 MG, BID
     Route: 049
     Dates: start: 20190328
  2. IRON [Concomitant]
     Active Substance: IRON
     Dosage: 1.6 ML, QD
     Dates: start: 20190421
  3. LEVOTHYROXINE. [Concomitant]
     Active Substance: LEVOTHYROXINE
     Dosage: 12.5 MCG, QD
     Dates: start: 20181105
  4. SILDENAFIL. [Concomitant]
     Active Substance: SILDENAFIL
     Dosage: 7.25 MG, TID
     Dates: start: 20181023
  5. HYDROCORTISONE. [Concomitant]
     Active Substance: HYDROCORTISONE
     Dosage: 3 MG, BID
     Dates: start: 20181108

REACTIONS (6)
  - Crying [Unknown]
  - Heart rate increased [Unknown]
  - Lethargy [Unknown]
  - Near drowning [Unknown]
  - Respiratory distress [Unknown]
  - Cardiac arrest [Unknown]

NARRATIVE: CASE EVENT DATE: 20190907
